FAERS Safety Report 17587493 (Version 1)
Quarter: 2020Q1

REPORT INFORMATION
  Report Type: Spontaneous
  Country: FR (occurrence: FR)
  Receive Date: 20200326
  Receipt Date: 20200326
  Transmission Date: 20200409
  Serious: Yes (Death, Other)
  Sender: FDA-Public Use
  Company Number: FR-MYLANLABS-2020M1031954

PATIENT

DRUGS (6)
  1. PREDNISONE. [Suspect]
     Active Substance: PREDNISONE
     Indication: RHINITIS
     Dosage: NON RENSEIGN?E
     Route: 064
     Dates: start: 20200129, end: 20200131
  2. MONAZOL [Suspect]
     Active Substance: SERTACONAZOLE NITRATE
     Indication: VULVOVAGINAL MYCOTIC INFECTION
     Dosage: 1 DOSAGE FORM
     Route: 064
     Dates: start: 20200129, end: 20200129
  3. TUSSIDANE [Suspect]
     Active Substance: DEXTROMETHORPHAN HYDROBROMIDE
     Indication: RHINITIS
     Dosage: NON RENSEIGN?E
     Route: 064
     Dates: start: 20200129, end: 20200130
  4. MISOONE [Suspect]
     Active Substance: MISOPROSTOL
     Indication: ABORTION INDUCED
     Dosage: 2 DOSAGE FORM
     Route: 064
     Dates: start: 20190906, end: 20190906
  5. MIFEGYNE [Suspect]
     Active Substance: MIFEPRISTONE
     Indication: ABORTION INDUCED
     Dosage: 1 DOSAGE FORM
     Route: 064
     Dates: start: 20190903, end: 20190903
  6. CODOLIPRANE [Suspect]
     Active Substance: ACETAMINOPHEN\CODEINE PHOSPHATE
     Indication: RHINITIS
     Dosage: NON RENSEIGN?E
     Route: 064
     Dates: start: 20200129

REACTIONS (2)
  - Foetal death [Fatal]
  - Foetal exposure during pregnancy [Recovered/Resolved]

NARRATIVE: CASE EVENT DATE: 20200220
